FAERS Safety Report 12180715 (Version 2)
Quarter: 2016Q2

REPORT INFORMATION
  Report Type: Report from Study
  Country: US (occurrence: US)
  Receive Date: 20160315
  Receipt Date: 20160404
  Transmission Date: 20160815
  Serious: Yes (Hospitalization, Other)
  Sender: FDA-Public Use
  Company Number: US-BAYER-2016-044275

PATIENT
  Age: 77 Year
  Sex: Male

DRUGS (1)
  1. NEXAVAR [Suspect]
     Active Substance: SORAFENIB
     Indication: HEPATOCELLULAR CARCINOMA
     Dosage: 400 MG, BID
     Route: 048
     Dates: start: 20160225, end: 20160307

REACTIONS (7)
  - Asthenia [None]
  - Blood pressure increased [None]
  - Heart rate increased [None]
  - Blood pressure fluctuation [None]
  - Pneumonia [None]
  - Blood sodium decreased [None]
  - Fatigue [None]

NARRATIVE: CASE EVENT DATE: 2016
